FAERS Safety Report 16206832 (Version 1)
Quarter: 2019Q2

REPORT INFORMATION
  Report Type: Report from Study
  Country: US (occurrence: US)
  Receive Date: 20190417
  Receipt Date: 20190417
  Transmission Date: 20190711
  Serious: Yes (Hospitalization)
  Sender: FDA-Public Use
  Company Number: US-ROCHE-2210568

PATIENT
  Age: 68 Year
  Sex: Female

DRUGS (3)
  1. XOLAIR [Suspect]
     Active Substance: OMALIZUMAB
     Dosage: DOUBLE DOSE
     Route: 058
     Dates: start: 20190130
  2. XOLAIR [Suspect]
     Active Substance: OMALIZUMAB
     Indication: ASTHMA
     Dosage: ONGOING: NO
     Route: 058
     Dates: end: 201806
  3. XOLAIR [Suspect]
     Active Substance: OMALIZUMAB
     Route: 058
     Dates: start: 20180608

REACTIONS (5)
  - Cough [Recovered/Resolved]
  - Dyspnoea [Recovered/Resolved]
  - Cough [Unknown]
  - Blood immunoglobulin E increased [Unknown]
  - Wheezing [Recovered/Resolved]

NARRATIVE: CASE EVENT DATE: 201808
